FAERS Safety Report 5888943-3 (Version None)
Quarter: 2008Q3

REPORT INFORMATION
  Report Type: 
  Country: None (occurrence: None)
  Receive Date: 20080919
  Receipt Date: 20080910
  Transmission Date: 20090109
  Serious: Yes (Hospitalization, Other)
  Sender: FDA-Public Use
  Company Number: US-JNJFOC-20080705608

PATIENT
  Sex: Male
  Weight: 92.99 kg

DRUGS (10)
  1. REMICADE [Suspect]
     Route: 042
  2. REMICADE [Suspect]
     Dosage: INFUSION 2-3 ON UNSPECIFIED DATES
     Route: 042
  3. REMICADE [Suspect]
     Dosage: INFUSION 2-3 ON UNSPECIFIED DATES
     Route: 042
  4. REMICADE [Suspect]
     Indication: CROHN'S DISEASE
     Route: 042
  5. ASPIRIN [Concomitant]
  6. CENTRUM SILVER [Concomitant]
  7. CALCIUM + D [Concomitant]
  8. LEVSIN [Concomitant]
  9. VALIUM [Concomitant]
  10. IMURAN [Concomitant]

REACTIONS (3)
  - MENINGIOMA [None]
  - MENINGITIS ASEPTIC [None]
  - SINUSITIS [None]
